FAERS Safety Report 8532235-0 (Version None)
Quarter: 2012Q3

REPORT INFORMATION
  Report Type: 
  Country: None (occurrence: None)
  Receive Date: 20120723
  Receipt Date: 20120710
  Transmission Date: 20120928
  Serious: Yes (Hospitalization)
  Sender: FDA-Public Use
  Company Number: SE-009507513-1207SWE001378

PATIENT

DRUGS (3)
  1. SIMVASTATIN [Suspect]
     Dosage: 40 MG, QD
     Route: 048
     Dates: start: 20111106, end: 20120115
  2. LEVOTHYROXINE SODIUM [Concomitant]
  3. CITALOPRAM [Concomitant]

REACTIONS (3)
  - PARAESTHESIA [None]
  - VISION BLURRED [None]
  - ARTHRALGIA [None]
